FAERS Safety Report 10955644 (Version 4)
Quarter: 2015Q4

REPORT INFORMATION
  Report Type: Spontaneous
  Country: JP (occurrence: JP)
  Receive Date: 20150326
  Receipt Date: 20151117
  Transmission Date: 20160304
  Serious: Yes (Death, Life-Threatening, Hospitalization, Other)
  Sender: FDA-Public Use
  Company Number: JP-JNJFOC-20150318425

PATIENT
  Age: 42 Year
  Sex: Male

DRUGS (17)
  1. PENTASA [Concomitant]
     Active Substance: MESALAMINE
     Route: 048
     Dates: end: 20150320
  2. REMICADE [Suspect]
     Active Substance: INFLIXIMAB
     Indication: COLITIS ULCERATIVE
     Dosage: 370 MG
     Route: 042
     Dates: start: 20140117
  3. REMICADE [Suspect]
     Active Substance: INFLIXIMAB
     Indication: COLITIS ULCERATIVE
     Route: 042
     Dates: start: 20130527
  4. REMICADE [Suspect]
     Active Substance: INFLIXIMAB
     Indication: COLITIS ULCERATIVE
     Route: 042
     Dates: start: 20130204
  5. REMICADE [Suspect]
     Active Substance: INFLIXIMAB
     Indication: COLITIS ULCERATIVE
     Route: 042
     Dates: start: 20130917
  6. LEUKERIN [Suspect]
     Active Substance: MERCAPTOPURINE
     Indication: COLITIS ULCERATIVE
     Route: 048
     Dates: end: 20140223
  7. BIO-THREE [Concomitant]
     Active Substance: HERBALS
     Dosage: 3 DF
     Route: 048
     Dates: start: 20120827, end: 20140223
  8. REMICADE [Suspect]
     Active Substance: INFLIXIMAB
     Indication: COLITIS ULCERATIVE
     Route: 042
     Dates: start: 20131112, end: 20131112
  9. REMICADE [Suspect]
     Active Substance: INFLIXIMAB
     Indication: COLITIS ULCERATIVE
     Dosage: 9TH DOSE (370 MG)
     Route: 042
     Dates: start: 20140114, end: 20140114
  10. RINDERON V [Concomitant]
     Active Substance: BETAMETHASONE VALERATE
     Route: 054
     Dates: start: 20120827, end: 20131223
  11. PREDNISOLONE. [Concomitant]
     Active Substance: PREDNISOLONE
     Dosage: TAPERED
     Route: 048
     Dates: start: 20120827, end: 20131209
  12. REMICADE [Suspect]
     Active Substance: INFLIXIMAB
     Indication: COLITIS ULCERATIVE
     Route: 042
     Dates: start: 20130107
  13. REMICADE [Suspect]
     Active Substance: INFLIXIMAB
     Indication: COLITIS ULCERATIVE
     Route: 042
     Dates: start: 20130722
  14. PENTASA [Concomitant]
     Active Substance: MESALAMINE
     Route: 048
     Dates: start: 20120827
  15. REMICADE [Suspect]
     Active Substance: INFLIXIMAB
     Indication: COLITIS ULCERATIVE
     Dosage: 370 MG
     Route: 042
     Dates: start: 20121225
  16. REMICADE [Suspect]
     Active Substance: INFLIXIMAB
     Indication: COLITIS ULCERATIVE
     Route: 042
     Dates: start: 20130401
  17. LEUKERIN [Suspect]
     Active Substance: MERCAPTOPURINE
     Indication: COLITIS ULCERATIVE
     Route: 048
     Dates: start: 20121015

REACTIONS (4)
  - Adenocarcinoma [Not Recovered/Not Resolved]
  - Metastases to lymph nodes [Unknown]
  - Mucinous adenocarcinoma of appendix [Recovered/Resolved]
  - Gastrooesophageal cancer [Fatal]

NARRATIVE: CASE EVENT DATE: 201401
